FAERS Safety Report 15362629 (Version 2)
Quarter: 2018Q4

REPORT INFORMATION
  Report Type: Report from Study
  Country: None (occurrence: US)
  Receive Date: 20180907
  Receipt Date: 20181115
  Transmission Date: 20190204
  Serious: Yes (Hospitalization, Other)
  Sender: FDA-Public Use
  Company Number: US-ABBVIE-18K-163-2360675-00

PATIENT
  Age: 18 Year
  Sex: Female

DRUGS (2)
  1. HUMIRA [Suspect]
     Active Substance: ADALIMUMAB
     Indication: CROHN^S DISEASE
     Route: 058
     Dates: end: 2018
  2. HUMIRA [Suspect]
     Active Substance: ADALIMUMAB
     Route: 058
     Dates: start: 2018

REACTIONS (19)
  - Nervous system disorder [Unknown]
  - Palpitations [Unknown]
  - Tremor [Not Recovered/Not Resolved]
  - Drug level decreased [Unknown]
  - Feeling abnormal [Unknown]
  - Vision blurred [Unknown]
  - Drug specific antibody present [Unknown]
  - Intentional self-injury [Unknown]
  - Crohn^s disease [Unknown]
  - Frustration tolerance decreased [Unknown]
  - Autism spectrum disorder [Unknown]
  - Headache [Unknown]
  - Dyspnoea [Unknown]
  - Dyskinesia [Not Recovered/Not Resolved]
  - Anxiety [Unknown]
  - Gastroenteritis viral [Unknown]
  - Panic attack [Unknown]
  - Fall [Unknown]
  - Facial pain [Unknown]

NARRATIVE: CASE EVENT DATE: 2018
